FAERS Safety Report 6253767-4 (Version None)
Quarter: 2009Q2

REPORT INFORMATION
  Report Type: 
  Country: None (occurrence: None)
  Receive Date: 20090630
  Receipt Date: 20090616
  Transmission Date: 20091009
  Serious: Yes (Other)
  Sender: FDA-Public Use
  Company Number: PPC200900088

PATIENT
  Age: 4 Year
  Sex: Female

DRUGS (6)
  1. ETOPOSIDE [Suspect]
     Indication: TERATOMA
     Dosage: 75 MG/M2, 1 IN 1 D,
  2. IFOSFAMIDE [Suspect]
     Indication: TERATOMA
     Dosage: 1.2 OTHER,
  3. MESNA [Suspect]
     Indication: TERATOMA
     Dosage: 1.2 OTHER,
  4. CISPLATIN [Suspect]
     Indication: TERATOMA
     Dosage: 20 MG/M2, 1 IN 1 D,
  5. EPIRUBICIN HYDROCHLORIDE [Suspect]
     Indication: TERATOMA
     Dosage: 30 MG/M2, 1 IN 1 D,
  6. CYCLOPHOSPHAMIDE [Suspect]
     Indication: TERATOMA
     Dosage: 1 OTHER, ONCE,

REACTIONS (8)
  - CARDIAC FAILURE CONGESTIVE [None]
  - CARDITIS [None]
  - HYPONATRAEMIA [None]
  - NEOPLASM PROGRESSION [None]
  - NERVOUS SYSTEM DISORDER [None]
  - NEUTROPENIC INFECTION [None]
  - PNEUMONIA LEGIONELLA [None]
  - RENAL FAILURE ACUTE [None]
